FAERS Safety Report 16680329 (Version 2)
Quarter: 2019Q3

REPORT INFORMATION
  Report Type: Report from Study
  Country: US (occurrence: US)
  Receive Date: 20190807
  Receipt Date: 20190822
  Transmission Date: 20191004
  Serious: Yes (Hospitalization)
  Sender: FDA-Public Use
  Company Number: US-ACTELION-A-NJ2017-148743

PATIENT
  Age: 36 Year
  Sex: Female
  Weight: 51.7 kg

DRUGS (7)
  1. FLOLAN [Concomitant]
     Active Substance: EPOPROSTENOL SODIUM
     Dosage: UNK
     Dates: start: 20181204
  2. ADEMPAS [Concomitant]
     Active Substance: RIOCIGUAT
  3. TRACLEER [Suspect]
     Active Substance: BOSENTAN
     Indication: PULMONARY HYPERTENSION
     Dosage: 125 MG, BID
     Route: 048
     Dates: start: 20160120
  4. TRACLEER [Suspect]
     Active Substance: BOSENTAN
     Dosage: 125 MG, BID
     Route: 048
     Dates: start: 20160120
  5. TADALAFIL. [Concomitant]
     Active Substance: TADALAFIL
  6. ORENITRAM [Suspect]
     Active Substance: TREPROSTINIL
     Indication: PRODUCT USED FOR UNKNOWN INDICATION
     Dosage: 0.25 MG, TID
     Route: 065
  7. ORENITRAM [Suspect]
     Active Substance: TREPROSTINIL
     Dosage: 0.125 MG, UNK
     Route: 065

REACTIONS (24)
  - Feeling hot [Unknown]
  - Pulmonary congestion [Unknown]
  - Pollakiuria [Unknown]
  - Migraine [Unknown]
  - Hypertension [Unknown]
  - Flushing [Unknown]
  - Cyanosis [Unknown]
  - Tinnitus [Unknown]
  - Nausea [Unknown]
  - Insomnia [Unknown]
  - Arterial haemorrhage [Unknown]
  - Hypotension [Recovering/Resolving]
  - Nervousness [Recovering/Resolving]
  - Dyspnoea [Unknown]
  - Dizziness [Recovering/Resolving]
  - Headache [Unknown]
  - Influenza [Unknown]
  - Weight decreased [Unknown]
  - Condition aggravated [Unknown]
  - Pain in jaw [Unknown]
  - Syncope [Unknown]
  - Hyperhidrosis [Unknown]
  - Haemoptysis [Unknown]
  - Decreased appetite [Unknown]

NARRATIVE: CASE EVENT DATE: 201804
